FAERS Safety Report 5408311-8 (Version None)
Quarter: 2007Q3

REPORT INFORMATION
  Report Type: 
  Country: None (occurrence: None)
  Receive Date: 20070803
  Receipt Date: 20070723
  Transmission Date: 20080115
  Serious: Yes (Hospitalization)
  Sender: FDA-Public Use
  Company Number: 2007-02300

PATIENT
  Age: 73 Year
  Sex: Male
  Weight: 55 kg

DRUGS (3)
  1. VELCADE [Suspect]
     Indication: MULTIPLE MYELOMA
     Dosage: 2.10 MG, INTRAVENOUS
     Route: 042
     Dates: start: 20070618
  2. THALIDOMIDE [Suspect]
     Indication: MULTIPLE MYELOMA
     Dosage: 100.00 MG, INTRAVENOUS
     Route: 042
     Dates: start: 20070618, end: 20070629
  3. DEXAMETHASONE [Suspect]
     Indication: MULTIPLE MYELOMA
     Dosage: 40.00 MG, INTRAVENOUS
     Route: 042
     Dates: start: 20070618

REACTIONS (2)
  - DIARRHOEA [None]
  - GINGIVAL ABSCESS [None]
